FAERS Safety Report 19442256 (Version 2)
Quarter: 2021Q4

REPORT INFORMATION
  Report Type: Other
  Country: US (occurrence: US)
  Receive Date: 20210621
  Receipt Date: 20211221
  Transmission Date: 20220303
  Serious: No
  Sender: FDA-Public Use
  Company Number: US-ACORDA-ACO_168500_2021

PATIENT
  Age: 66 Year
  Sex: Male

DRUGS (2)
  1. INBRIJA [Suspect]
     Active Substance: LEVODOPA
     Indication: Parkinson^s disease
     Dosage: 84 MILLIGRAM, PRN (DO NOT EXCEED 5 DOSES IN A DAY)
     Dates: start: 20210401
  2. INBRIJA [Suspect]
     Active Substance: LEVODOPA
     Indication: On and off phenomenon

REACTIONS (3)
  - Heart rate decreased [Not Recovered/Not Resolved]
  - Device use issue [Unknown]
  - Disinhibition [Unknown]

NARRATIVE: CASE EVENT DATE: 20210401
